FAERS Safety Report 20812052 (Version 1)
Quarter: 2022Q2

REPORT INFORMATION
  Report Type: Spontaneous
  Country: None (occurrence: TG)
  Receive Date: 20220511
  Receipt Date: 20220511
  Transmission Date: 20220721
  Serious: Yes (Hospitalization)
  Sender: FDA-Public Use
  Company Number: TG-MLV Pharma LLC-2128656

PATIENT
  Sex: Male

DRUGS (4)
  1. BETAMETHASONE DIPROPIONATE [Suspect]
     Active Substance: BETAMETHASONE DIPROPIONATE
     Indication: Neonatal infection
     Route: 030
  2. CEFTAZIDIME [Suspect]
     Active Substance: CEFTAZIDIME
     Route: 030
  3. GENTAMICIN [Suspect]
     Active Substance: GENTAMICIN
     Route: 030
  4. PHENOBARBITAL [Suspect]
     Active Substance: PHENOBARBITAL
     Route: 030

REACTIONS (1)
  - Embolia cutis medicamentosa [Recovered/Resolved]
